FAERS Safety Report 18763560 (Version 1)
Quarter: 2021Q1

REPORT INFORMATION
  Report Type: Spontaneous
  Country: US (occurrence: US)
  Receive Date: 20210120
  Receipt Date: 20210120
  Transmission Date: 20210419
  Serious: Yes (Other)
  Sender: FDA-Public Use
  Company Number: US-ASTRAZENECA-2021A010154

PATIENT
  Age: 795 Month
  Sex: Female
  Weight: 78 kg

DRUGS (62)
  1. PRILOSEC [Suspect]
     Active Substance: OMEPRAZOLE MAGNESIUM
     Indication: GASTROOESOPHAGEAL REFLUX DISEASE
     Route: 048
     Dates: start: 1992, end: 200301
  2. PRILOSEC [Suspect]
     Active Substance: OMEPRAZOLE MAGNESIUM
     Indication: GASTROOESOPHAGEAL REFLUX DISEASE
     Dosage: GENERIC
     Route: 065
     Dates: start: 200301, end: 201705
  3. PRILOSEC [Suspect]
     Active Substance: OMEPRAZOLE MAGNESIUM
     Indication: GASTROOESOPHAGEAL REFLUX DISEASE
     Route: 065
     Dates: start: 20090423
  4. RANITIDINE. [Concomitant]
     Active Substance: RANITIDINE
     Dates: start: 200810, end: 201311
  5. TUMS [Concomitant]
     Active Substance: CALCIUM CARBONATE
     Dosage: 1?2 TABLETS AS NEEDED
  6. DITROPAN [Concomitant]
     Active Substance: OXYBUTYNIN CHLORIDE
  7. ZANTAC [Concomitant]
     Active Substance: RANITIDINE HYDROCHLORIDE
  8. SEROQUEL [Concomitant]
     Active Substance: QUETIAPINE FUMARATE
  9. CITALOPRAM [Concomitant]
     Active Substance: CITALOPRAM HYDROBROMIDE
  10. BENZONATATE. [Concomitant]
     Active Substance: BENZONATATE
  11. PROGESTERONE. [Concomitant]
     Active Substance: PROGESTERONE
  12. METAXALONE. [Concomitant]
     Active Substance: METAXALONE
  13. PRILOSEC [Suspect]
     Active Substance: OMEPRAZOLE MAGNESIUM
     Indication: GASTROOESOPHAGEAL REFLUX DISEASE
     Route: 065
     Dates: start: 20080805
  14. SMX?TMP [Concomitant]
     Active Substance: SULFAMETHOXAZOLE\TRIMETHOPRIM
     Indication: INFECTION
     Dates: start: 201201, end: 201201
  15. MAGNESIUM [Concomitant]
     Active Substance: MAGNESIUM
     Indication: ANXIETY
     Dates: start: 202010
  16. COLACE [Concomitant]
     Active Substance: DOCUSATE SODIUM
  17. CHOLESTYRAMINE. [Concomitant]
     Active Substance: CHOLESTYRAMINE
  18. HYDROCODONE/ACETAMINOPHEN [Concomitant]
     Active Substance: ACETAMINOPHEN\HYDROCODONE
  19. TAMIFLU [Concomitant]
     Active Substance: OSELTAMIVIR PHOSPHATE
  20. LISINOPRIL. [Concomitant]
     Active Substance: LISINOPRIL
     Indication: HYPERTENSION
     Dates: start: 200901, end: 201911
  21. AZITHROMYCIN ANHYDROUS. [Concomitant]
     Active Substance: AZITHROMYCIN ANHYDROUS
     Indication: INFECTION
     Dates: start: 201106, end: 201106
  22. SMX?TMP [Concomitant]
     Active Substance: SULFAMETHOXAZOLE\TRIMETHOPRIM
     Indication: INFECTION
     Dates: start: 201402, end: 201402
  23. MULTIVITAMINS [Concomitant]
     Active Substance: VITAMINS
     Indication: GENERAL PHYSICAL HEALTH DETERIORATION
     Dates: start: 2015
  24. MAGNESIUM [Concomitant]
     Active Substance: MAGNESIUM
     Indication: MUSCLE SPASMS
     Dates: start: 202010
  25. TYLENOL [Concomitant]
     Active Substance: ACETAMINOPHEN
  26. SIMVASTATIN. [Concomitant]
     Active Substance: SIMVASTATIN
     Indication: BLOOD CHOLESTEROL INCREASED
     Dates: start: 201004, end: 201912
  27. AZITHROMYCIN ANHYDROUS. [Concomitant]
     Active Substance: AZITHROMYCIN ANHYDROUS
     Indication: INFECTION
     Dates: start: 201008, end: 201008
  28. CALCIUM [Concomitant]
     Active Substance: CALCIUM
     Indication: OSTEOPOROSIS
  29. FAMOTIDINE. [Concomitant]
     Active Substance: FAMOTIDINE
     Dates: start: 201907, end: 201910
  30. LEXAPRO [Concomitant]
     Active Substance: ESCITALOPRAM OXALATE
  31. KENALOG [Concomitant]
     Active Substance: TRIAMCINOLONE ACETONIDE
  32. SUCRALFATE. [Concomitant]
     Active Substance: SUCRALFATE
  33. ALPRAZOLAM. [Concomitant]
     Active Substance: ALPRAZOLAM
  34. FLUOXETIN [Concomitant]
     Active Substance: FLUOXETINE HYDROCHLORIDE
  35. ONDANSETRON [Concomitant]
     Active Substance: ONDANSETRON
  36. AZITHROMYCIN ANHYDROUS. [Concomitant]
     Active Substance: AZITHROMYCIN ANHYDROUS
     Indication: INFECTION
     Dates: start: 201704, end: 201704
  37. MELOXICAM. [Concomitant]
     Active Substance: MELOXICAM
     Indication: PAIN
     Dates: start: 201309, end: 201411
  38. DESYREL [Concomitant]
     Active Substance: TRAZODONE HYDROCHLORIDE
  39. FLONASE [Concomitant]
     Active Substance: FLUTICASONE PROPIONATE
  40. VENLAFAXINE [Concomitant]
     Active Substance: VENLAFAXINE HYDROCHLORIDE
  41. PRILOSEC [Suspect]
     Active Substance: OMEPRAZOLE MAGNESIUM
     Indication: GASTROOESOPHAGEAL REFLUX DISEASE
     Route: 065
     Dates: start: 20081205
  42. PRILOSEC [Suspect]
     Active Substance: OMEPRAZOLE MAGNESIUM
     Indication: GASTROOESOPHAGEAL REFLUX DISEASE
     Route: 065
     Dates: start: 20090122
  43. PREVACID [Suspect]
     Active Substance: LANSOPRAZOLE
     Indication: GASTROOESOPHAGEAL REFLUX DISEASE
     Route: 065
     Dates: start: 199503, end: 199509
  44. NAPROXEN. [Concomitant]
     Active Substance: NAPROXEN
     Indication: PAIN
     Dates: start: 200910, end: 200911
  45. TRAZODONE [Concomitant]
     Active Substance: TRAZODONE HYDROCHLORIDE
  46. CLOBETASOL [Concomitant]
     Active Substance: CLOBETASOL
  47. GABAPENTIN. [Concomitant]
     Active Substance: GABAPENTIN
  48. ALBUTEROL HFA [Concomitant]
     Active Substance: ALBUTEROL SULFATE
  49. LEVOFLOXACIN. [Concomitant]
     Active Substance: LEVOFLOXACIN
     Indication: INFECTION
     Dates: start: 201405, end: 201405
  50. NAPROXEN. [Concomitant]
     Active Substance: NAPROXEN
     Indication: PAIN
     Dates: start: 201003, end: 201006
  51. ZOCOR [Concomitant]
     Active Substance: SIMVASTATIN
  52. OXYBUTYNIN. [Concomitant]
     Active Substance: OXYBUTYNIN CHLORIDE
  53. FERROUS GLUCONATE [Concomitant]
     Active Substance: FERROUS GLUCONATE
  54. ESTRADIOL. [Concomitant]
     Active Substance: ESTRADIOL
  55. CYMBALTA [Concomitant]
     Active Substance: DULOXETINE HYDROCHLORIDE
  56. NABUMETONE. [Concomitant]
     Active Substance: NABUMETONE
  57. ARTHROTEC [Concomitant]
     Active Substance: DICLOFENAC SODIUM\MISOPROSTOL
  58. PRILOSEC [Suspect]
     Active Substance: OMEPRAZOLE MAGNESIUM
     Indication: GASTROOESOPHAGEAL REFLUX DISEASE
     Route: 065
     Dates: start: 20090226
  59. RANITIDINE. [Concomitant]
     Active Substance: RANITIDINE
     Dates: start: 201512, end: 201705
  60. ULTRAM [Concomitant]
     Active Substance: TRAMADOL HYDROCHLORIDE
  61. MECLIZINE [Concomitant]
     Active Substance: MECLIZINE HYDROCHLORIDE
  62. PROCHLORPERAZINE. [Concomitant]
     Active Substance: PROCHLORPERAZINE

REACTIONS (3)
  - Gastrooesophageal reflux disease [Not Recovered/Not Resolved]
  - Chronic kidney disease [Not Recovered/Not Resolved]
  - Renal injury [Unknown]

NARRATIVE: CASE EVENT DATE: 201504
